FAERS Safety Report 25342978 (Version 1)
Quarter: 2025Q2

REPORT INFORMATION
  Report Type: Spontaneous
  Country: US (occurrence: US)
  Receive Date: 20250521
  Receipt Date: 20250521
  Transmission Date: 20250717
  Serious: No
  Sender: MYLAN
  Company Number: US-MYLANLABS-2025M1040737

PATIENT
  Sex: Female

DRUGS (4)
  1. BREYNA [Suspect]
     Active Substance: BUDESONIDE\FORMOTEROL FUMARATE
     Indication: Asthma
     Dosage: 160 PER 4.5 MICROGRAM, BID (TWO PUFFS TWICE A DAY)
     Dates: start: 2025
  2. BREYNA [Suspect]
     Active Substance: BUDESONIDE\FORMOTEROL FUMARATE
     Dosage: 160 PER 4.5 MICROGRAM, BID (TWO PUFFS TWICE A DAY)
     Route: 055
     Dates: start: 2025
  3. BREYNA [Suspect]
     Active Substance: BUDESONIDE\FORMOTEROL FUMARATE
     Dosage: 160 PER 4.5 MICROGRAM, BID (TWO PUFFS TWICE A DAY)
     Route: 055
     Dates: start: 2025
  4. BREYNA [Suspect]
     Active Substance: BUDESONIDE\FORMOTEROL FUMARATE
     Dosage: 160 PER 4.5 MICROGRAM, BID (TWO PUFFS TWICE A DAY)
     Dates: start: 2025

REACTIONS (3)
  - Device delivery system issue [Unknown]
  - Device issue [Unknown]
  - Wrong technique in product usage process [Unknown]

NARRATIVE: CASE EVENT DATE: 20250101
